FAERS Safety Report 9628651 (Version 3)
Quarter: 2013Q4

REPORT INFORMATION
  Report Type: Spontaneous
  Country: IL (occurrence: IL)
  Receive Date: 20131017
  Receipt Date: 20131128
  Transmission Date: 20140711
  Serious: Yes (Other)
  Sender: FDA-Public Use
  Company Number: IL-SA-2013SA103458

PATIENT
  Age: 64 Year
  Sex: Female

DRUGS (4)
  1. LANTUS SOLOSTAR [Suspect]
     Indication: DIABETES MELLITUS
     Route: 058
     Dates: start: 2010
  2. SOLOSTAR [Suspect]
     Indication: DEVICE THERAPY
     Dates: start: 2010
  3. APIDRA SOLOSTAR [Suspect]
     Indication: DIABETES MELLITUS
     Route: 058
     Dates: start: 2010
  4. SOLOSTAR [Suspect]
     Indication: DEVICE THERAPY
     Dates: start: 2010

REACTIONS (5)
  - Atrial fibrillation [Unknown]
  - Visual impairment [Not Recovered/Not Resolved]
  - Thyroid disorder [Unknown]
  - Injection site haematoma [Not Recovered/Not Resolved]
  - Injection site pain [Not Recovered/Not Resolved]
